FAERS Safety Report 8199991-5 (Version None)
Quarter: 2012Q1

REPORT INFORMATION
  Report Type: 
  Country: None (occurrence: None)
  Receive Date: 20120312
  Receipt Date: 20120306
  Transmission Date: 20120608
  Serious: No
  Sender: FDA-Public Use
  Company Number: US-PFIZER INC-2012058501

PATIENT
  Sex: Female
  Weight: 78 kg

DRUGS (4)
  1. LYRICA [Suspect]
     Indication: FIBROMYALGIA
     Dosage: 50 MG, 3X/DAY
     Route: 048
  2. LYRICA [Suspect]
     Dosage: 125 MG/DAY
  3. ZIAC [Suspect]
     Indication: HYPERTENSION
     Dosage: 2.5 MG, 2X/DAY
     Route: 048
  4. LYRICA [Suspect]
     Dosage: 125 MG FIVE TIMES A DAY

REACTIONS (3)
  - VISION BLURRED [None]
  - PAIN [None]
  - MUSCLE RIGIDITY [None]
